FAERS Safety Report 5276674-2 (Version None)
Quarter: 2007Q1

REPORT INFORMATION
  Report Type: 
  Country: None (occurrence: None)
  Receive Date: 20070327
  Receipt Date: 20070315
  Transmission Date: 20070707
  Serious: Yes (Other)
  Sender: FDA-Public Use
  Company Number: PHFR2006GB02970

PATIENT
  Age: 47 Year
  Sex: Female
  Weight: 126.98 kg

DRUGS (3)
  1. CLOZARIL [Suspect]
     Indication: SCHIZOPHRENIA
     Dosage: 375MG / DAILY
     Route: 048
     Dates: start: 20040517
  2. VENLAFAXINE HCL [Concomitant]
     Indication: AFFECTIVE DISORDER
     Dosage: 300MG / DAY
     Route: 048
  3. KWELLS [Concomitant]
     Dosage: 300MCG / DAY
     Route: 048

REACTIONS (2)
  - DIABETES MELLITUS NON-INSULIN-DEPENDENT [None]
  - OVERWEIGHT [None]
